FAERS Safety Report 25270412 (Version 1)
Quarter: 2025Q2

REPORT INFORMATION
  Report Type: Spontaneous
  Country: GB (occurrence: GB)
  Receive Date: 20250505
  Receipt Date: 20250505
  Transmission Date: 20250717
  Serious: Yes (Other)
  Sender: ESPERION THERAPEUTICS
  Company Number: None

PATIENT
  Age: 79 Year
  Sex: Female
  Weight: 68 kg

DRUGS (4)
  1. BEMPEDOIC ACID [Suspect]
     Active Substance: BEMPEDOIC ACID
     Indication: Product used for unknown indication
     Dosage: 180 MILLIGRAM, QD
     Route: 048
     Dates: start: 20240815, end: 20241016
  2. RYBELSUS [Concomitant]
     Active Substance: SEMAGLUTIDE
     Indication: Type 2 diabetes mellitus
     Dosage: 7MG, QD (1 A DAY) [REPORTED AS PL STOP 3MG RYBELSUS]
     Route: 048
     Dates: start: 20250108, end: 20250205
  3. RYBELSUS [Concomitant]
     Active Substance: SEMAGLUTIDE
     Dosage: 3 MG, QD (1 DAY)
     Route: 048
     Dates: start: 20250205
  4. DELOFINE XL [Concomitant]
     Indication: Product used for unknown indication
     Dosage: 10 MG, QD
     Route: 048
     Dates: start: 20250205

REACTIONS (2)
  - Muscular weakness [Recovered/Resolved]
  - Nausea [Recovered/Resolved]

NARRATIVE: CASE EVENT DATE: 20240815
